FAERS Safety Report 17546055 (Version 2)
Quarter: 2020Q3

REPORT INFORMATION
  Report Type: Other
  Country: CA (occurrence: CA)
  Receive Date: 20200316
  Receipt Date: 20200724
  Transmission Date: 20201102
  Serious: Yes (Other)
  Sender: FDA-Public Use
  Company Number: CA-ASPEN-GLO2020CA002825

PATIENT
  Sex: Female

DRUGS (32)
  1. DILAUDID [Suspect]
     Active Substance: HYDROMORPHONE HYDROCHLORIDE
     Indication: PRODUCT USED FOR UNKNOWN INDICATION
     Dosage: 2 MG, 3 DOSE DAILY
     Route: 048
  2. HYDROMORPHONE [Suspect]
     Active Substance: HYDROMORPHONE
     Indication: ABDOMINAL PAIN
     Dosage: UNK
     Route: 048
  3. HYDROMORPHONE [Suspect]
     Active Substance: HYDROMORPHONE
     Dosage: 0.5 MG
     Route: 065
  4. METRONIDAZOLE. [Suspect]
     Active Substance: METRONIDAZOLE
     Indication: PRODUCT USED FOR UNKNOWN INDICATION
     Dosage: 500 MG, 2 DOSE DAILY
     Route: 065
  5. METRONIDAZOLE. [Suspect]
     Active Substance: METRONIDAZOLE
     Dosage: 2 DF, 1 DOSE DAILY
     Route: 065
  6. CORTIMENT (HYDROCORTISONE ACETATE) [Suspect]
     Active Substance: HYDROCORTISONE ACETATE
     Dosage: 100 MG
     Route: 065
  7. INFLIXIMAB [Suspect]
     Active Substance: INFLIXIMAB
     Indication: COLITIS ULCERATIVE
     Dosage: 600 MG
     Route: 042
  8. INFLIXIMAB [Suspect]
     Active Substance: INFLIXIMAB
     Dosage: 600 MG, 1 DOSE DAILY
     Route: 042
  9. METHYLPREDNISOLONE. [Suspect]
     Active Substance: METHYLPREDNISOLONE
     Dosage: 50 MG, 1 DOSE DAILY
     Route: 042
  10. PROCTODAN?HC [Suspect]
     Active Substance: HYDROCORTISONE\PRAMOXINE\ZINC SULFATE
     Indication: PRODUCT USED FOR UNKNOWN INDICATION
     Route: 054
  11. DESOGESTREL, ETHINYLESTRADIOL [Suspect]
     Active Substance: DESOGESTREL
     Route: 048
  12. CORTIMENT (HYDROCORTISONE ACETATE) [Suspect]
     Active Substance: HYDROCORTISONE ACETATE
     Indication: PRODUCT USED FOR UNKNOWN INDICATION
     Dosage: 1 DOSE DAILY
     Route: 054
  13. HYDROMORPHONE [Suspect]
     Active Substance: HYDROMORPHONE
     Dosage: UNK UNK, 1 DOSE DAILY
     Route: 065
  14. HYDROMORPHONE [Suspect]
     Active Substance: HYDROMORPHONE
     Dosage: 4 MG
     Route: 065
  15. INFLIXIMAB [Suspect]
     Active Substance: INFLIXIMAB
     Dosage: 300 MG, 1 DOSE DAILY
     Route: 042
  16. METHYLPREDNISOLONE. [Suspect]
     Active Substance: METHYLPREDNISOLONE
     Dosage: 1 DF, 1 DOSE DAILY
     Route: 042
  17. HYDROMORPHONE [Concomitant]
     Active Substance: HYDROMORPHONE
     Dosage: 0.5 MG
     Route: 065
  18. ERYTHROMYCIN. [Suspect]
     Active Substance: ERYTHROMYCIN
     Indication: PRODUCT USED FOR UNKNOWN INDICATION
     Route: 065
  19. PRAMOXINE/HYDROCORTISONE [Suspect]
     Active Substance: HYDROCORTISONE ACETATE\PRAMOXINE HYDROCHLORIDE
     Indication: PRODUCT USED FOR UNKNOWN INDICATION
     Route: 054
  20. PREDNISONE. [Suspect]
     Active Substance: PREDNISONE
     Dosage: 15 MG, 1 DOSE DAILY
     Route: 048
  21. DESOGESTREL, ETHINYLESTRADIOL [Suspect]
     Active Substance: DESOGESTREL
     Indication: CONTRACEPTION
     Route: 048
  22. DESOGESTREL, ETHINYLESTRADIOL [Suspect]
     Active Substance: DESOGESTREL
     Route: 065
  23. METHYLPREDNISOLONE. [Suspect]
     Active Substance: METHYLPREDNISOLONE
     Indication: PRODUCT USED FOR UNKNOWN INDICATION
     Dosage: 50 MG, 2 DOSE DAILY
     Route: 042
  24. METHYLPREDNISOLONE. [Suspect]
     Active Substance: METHYLPREDNISOLONE
     Dosage: 2 DF, 1 DOSE DAILY
     Route: 042
  25. PREDNISONE. [Suspect]
     Active Substance: PREDNISONE
     Indication: PRODUCT USED FOR UNKNOWN INDICATION
     Dosage: 15 MG
     Route: 048
  26. HYDROMORPHONE [Suspect]
     Active Substance: HYDROMORPHONE
     Dosage: 1 DF
     Route: 065
  27. HYDROMORPHONE [Concomitant]
     Active Substance: HYDROMORPHONE
     Indication: PRODUCT USED FOR UNKNOWN INDICATION
     Dosage: 4 MG
     Route: 065
  28. DILAUDID [Suspect]
     Active Substance: HYDROMORPHONE HYDROCHLORIDE
     Dosage: 2 MG, 3 DOSE DAILY
     Route: 048
  29. HYDROMORPHONE [Suspect]
     Active Substance: HYDROMORPHONE
     Dosage: UNK
     Route: 058
  30. HYDROMORPHONE [Suspect]
     Active Substance: HYDROMORPHONE
     Dosage: 1 MG, 1 DOSE DAILY
     Route: 065
  31. METRONIDAZOLE. [Suspect]
     Active Substance: METRONIDAZOLE
     Dosage: 500 MG, 1 DOSE DAILY
     Route: 065
  32. METRONIDAZOLE. [Suspect]
     Active Substance: METRONIDAZOLE
     Dosage: 1 DF, 1 DOSE DAILY
     Route: 065

REACTIONS (14)
  - Abdominal distension [Unknown]
  - Haematochezia [Unknown]
  - Mucous stools [Unknown]
  - Pyrexia [Unknown]
  - Faecal volume decreased [Unknown]
  - Rectal haemorrhage [Unknown]
  - Constipation [Unknown]
  - Visual impairment [Unknown]
  - Abdominal pain [Unknown]
  - Blindness [Unknown]
  - Off label use [Unknown]
  - Product use in unapproved indication [Unknown]
  - Nausea [Unknown]
  - Vomiting [Unknown]
